FAERS Safety Report 24919782 (Version 1)
Quarter: 2025Q1

REPORT INFORMATION
  Report Type: Spontaneous
  Country: CH (occurrence: CH)
  Receive Date: 20250204
  Receipt Date: 20250204
  Transmission Date: 20250409
  Serious: No
  Sender: EXELIXIS
  Company Number: CH-BRISTOL-MYERS SQUIBB COMPANY-2023-186634

PATIENT

DRUGS (43)
  1. CABOMETYX [Suspect]
     Active Substance: CABOZANTINIB S-MALATE
     Indication: Clear cell renal cell carcinoma
  2. OPDIVO [Suspect]
     Active Substance: NIVOLUMAB
     Indication: Clear cell renal cell carcinoma
     Dates: start: 20230303
  3. OPDIVO [Suspect]
     Active Substance: NIVOLUMAB
     Dates: start: 20230317
  4. OPDIVO [Suspect]
     Active Substance: NIVOLUMAB
     Dates: start: 20230331
  5. OPDIVO [Suspect]
     Active Substance: NIVOLUMAB
     Dates: start: 20230414
  6. OPDIVO [Suspect]
     Active Substance: NIVOLUMAB
     Dates: start: 20230428
  7. OPDIVO [Suspect]
     Active Substance: NIVOLUMAB
     Dates: start: 20230519
  8. OPDIVO [Suspect]
     Active Substance: NIVOLUMAB
     Dates: start: 20230602
  9. OPDIVO [Suspect]
     Active Substance: NIVOLUMAB
     Dates: start: 20230616
  10. OPDIVO [Suspect]
     Active Substance: NIVOLUMAB
     Dates: start: 20230728
  11. OPDIVO [Suspect]
     Active Substance: NIVOLUMAB
     Dates: start: 20230630
  12. OPDIVO [Suspect]
     Active Substance: NIVOLUMAB
     Dates: start: 20230811
  13. OPDIVO [Suspect]
     Active Substance: NIVOLUMAB
     Dates: start: 20230825
  14. OPDIVO [Suspect]
     Active Substance: NIVOLUMAB
     Dates: start: 20230908
  15. OPDIVO [Suspect]
     Active Substance: NIVOLUMAB
     Dates: start: 20230922
  16. OPDIVO [Suspect]
     Active Substance: NIVOLUMAB
     Dates: start: 20231006
  17. OPDIVO [Suspect]
     Active Substance: NIVOLUMAB
     Dates: start: 20231020
  18. OPDIVO [Suspect]
     Active Substance: NIVOLUMAB
     Dates: start: 20231103
  19. OPDIVO [Suspect]
     Active Substance: NIVOLUMAB
     Dates: start: 20231117
  20. OPDIVO [Suspect]
     Active Substance: NIVOLUMAB
     Dates: start: 20231201
  21. OPDIVO [Suspect]
     Active Substance: NIVOLUMAB
     Dates: start: 20231215
  22. OPDIVO [Suspect]
     Active Substance: NIVOLUMAB
     Dates: start: 20231229
  23. OPDIVO [Suspect]
     Active Substance: NIVOLUMAB
     Dates: start: 20240112
  24. OPDIVO [Suspect]
     Active Substance: NIVOLUMAB
     Dates: start: 20240126
  25. OPDIVO [Suspect]
     Active Substance: NIVOLUMAB
     Dates: start: 20240216
  26. OPDIVO [Suspect]
     Active Substance: NIVOLUMAB
     Dates: start: 20240229
  27. OPDIVO [Suspect]
     Active Substance: NIVOLUMAB
     Dates: start: 20240315
  28. OPDIVO [Suspect]
     Active Substance: NIVOLUMAB
     Dates: start: 20240328
  29. OPDIVO [Suspect]
     Active Substance: NIVOLUMAB
     Dates: start: 20240412
  30. OPDIVO [Suspect]
     Active Substance: NIVOLUMAB
     Dates: start: 20240426
  31. OPDIVO [Suspect]
     Active Substance: NIVOLUMAB
     Dates: start: 20240510
  32. OPDIVO [Suspect]
     Active Substance: NIVOLUMAB
     Dates: start: 20240524
  33. OPDIVO [Suspect]
     Active Substance: NIVOLUMAB
     Dates: start: 20240607
  34. OPDIVO [Suspect]
     Active Substance: NIVOLUMAB
     Dates: start: 20240621
  35. OPDIVO [Suspect]
     Active Substance: NIVOLUMAB
     Dates: start: 20240705
  36. OPDIVO [Suspect]
     Active Substance: NIVOLUMAB
     Dates: start: 20240719
  37. OPDIVO [Suspect]
     Active Substance: NIVOLUMAB
     Dates: start: 20240802
  38. OPDIVO [Suspect]
     Active Substance: NIVOLUMAB
     Dates: start: 20240816
  39. OPDIVO [Suspect]
     Active Substance: NIVOLUMAB
     Dates: start: 20240830
  40. OPDIVO [Suspect]
     Active Substance: NIVOLUMAB
     Dates: start: 20240913
  41. OPDIVO [Suspect]
     Active Substance: NIVOLUMAB
     Dates: start: 20240927
  42. OPDIVO [Suspect]
     Active Substance: NIVOLUMAB
     Dates: start: 20241011
  43. OPDIVO [Suspect]
     Active Substance: NIVOLUMAB
     Dates: start: 20241025

REACTIONS (1)
  - Off label use [Unknown]
